FAERS Safety Report 5210620-2 (Version None)
Quarter: 2006Q4

REPORT INFORMATION
  Report Type: 
  Country: None (occurrence: None)
  Receive Date: 20061106
  Receipt Date: 20060912
  Transmission Date: 20070319
  Serious: No
  Sender: FDA-Public Use
  Company Number: VNL_0212_2006

PATIENT
  Age: 73 Year
  Sex: Male
  Weight: 79.3795 kg

DRUGS (2)
  1. APOKYN [Suspect]
     Indication: PARKINSON'S DISEASE
     Dosage: 0.2 MG PRN SC
     Route: 058
     Dates: start: 20060901
  2. LOTS OF MEDICATIONS (NONE SPECIFIED) [Concomitant]

REACTIONS (1)
  - RHINORRHOEA [None]
